FAERS Safety Report 8380372-6 (Version None)
Quarter: 2012Q2

REPORT INFORMATION
  Report Type: 
  Country: None (occurrence: None)
  Receive Date: 20120523
  Receipt Date: 20120511
  Transmission Date: 20120825
  Serious: Yes (Other)
  Sender: FDA-Public Use
  Company Number: CA-JNJFOC-20120513301

PATIENT
  Age: 41 Year
  Sex: Female

DRUGS (3)
  1. ACETAMINOPHEN [Suspect]
     Indication: HEADACHE
     Route: 048
     Dates: start: 20120501, end: 20120501
  2. ACETAMINOPHEN [Suspect]
     Route: 048
  3. POLYSPORIN REGULAR OINTMENT [Concomitant]
     Indication: NASAL ULCER
     Dates: start: 20120507, end: 20120507

REACTIONS (3)
  - CONTUSION [None]
  - OEDEMA PERIPHERAL [None]
  - ERYTHEMA [None]
